FAERS Safety Report 4348504-4 (Version None)
Quarter: 2004Q2

REPORT INFORMATION
  Report Type: 
  Country: None (occurrence: None)
  Receive Date: 20040427
  Receipt Date: 20040225
  Transmission Date: 20050107
  Serious: Yes (Life-Threatening, Hospitalization)
  Sender: FDA-Public Use
  Company Number: FR-ROCHE-359750

PATIENT
  Age: 40 Year
  Sex: Female

DRUGS (5)
  1. LOXEN [Suspect]
     Dosage: SECONDARY INDICATIONS  METRORRHAGIA AND ABNORMAL UTERINE CONDITIONS.
     Route: 042
     Dates: start: 20040207, end: 20040211
  2. LOXEN [Suspect]
     Dosage: SECONDARY INDICATIONS  METRORRHAGIA AND ABNORMAL UTERINE CONDITIONS.
     Route: 042
     Dates: start: 20040211
  3. BETAMETHASONE [Concomitant]
  4. AMOXICILLIN TRIHYDRATE [Concomitant]
  5. SPASFON [Concomitant]

REACTIONS (11)
  - ATELECTASIS [None]
  - CAESAREAN SECTION [None]
  - COMPLICATIONS OF MATERNAL EXPOSURE TO THERAPEUTIC DRUGS [None]
  - DILATATION ATRIAL [None]
  - HAEMOGLOBIN DECREASED [None]
  - MITRAL VALVE INCOMPETENCE [None]
  - PERICARDIAL EFFUSION [None]
  - PREMATURE BABY [None]
  - PULMONARY EMBOLISM [None]
  - RED BLOOD CELL COUNT DECREASED [None]
  - TACHYCARDIA [None]
